FAERS Safety Report 7485398-2 (Version None)
Quarter: 2011Q2

REPORT INFORMATION
  Report Type: 
  Country: None (occurrence: None)
  Receive Date: 20110517
  Receipt Date: 20110502
  Transmission Date: 20111010
  Serious: No
  Sender: FDA-Public Use
  Company Number: US-B.I. PHARMACEUTICALS,INC./RIDGEFIELD-2011-BP-12246BP

PATIENT
  Sex: Female

DRUGS (1)
  1. PRADAXA [Suspect]
     Indication: ATRIAL FIBRILLATION
     Dosage: 300 MG
     Route: 048
     Dates: start: 20110217

REACTIONS (9)
  - NAUSEA [None]
  - WEIGHT INCREASED [None]
  - HEMIPARESIS [None]
  - CONTUSION [None]
  - DIARRHOEA [None]
  - PARAESTHESIA [None]
  - PAIN [None]
  - PRURITUS [None]
  - DIZZINESS [None]
